FAERS Safety Report 4510107-6 (Version None)
Quarter: 2004Q4

REPORT INFORMATION
  Report Type: 
  Country: None (occurrence: None)
  Receive Date: 20041124
  Receipt Date: 20041115
  Transmission Date: 20050328
  Serious: Yes (Hospitalization, Other)
  Sender: FDA-Public Use
  Company Number: GB-JNJFOC-20041103939

PATIENT
  Sex: Male

DRUGS (11)
  1. REMICADE [Suspect]
     Indication: RHEUMATOID ARTHRITIS
     Route: 042
  2. METHOTREXATE [Concomitant]
  3. PREDNISOLONE [Concomitant]
  4. FRUSEMIDE [Concomitant]
  5. ASPIRIN [Concomitant]
  6. RAMIPRIL [Concomitant]
  7. LANSOPRAZOLE [Concomitant]
  8. NABUMETONE [Concomitant]
  9. DIDRONEL [Concomitant]
  10. INDORAMIN [Concomitant]
  11. IMDUR [Concomitant]

REACTIONS (4)
  - CHEMICAL POISONING [None]
  - CHRONIC OBSTRUCTIVE AIRWAYS DISEASE [None]
  - LUNG NEOPLASM MALIGNANT [None]
  - PLEURAL DISORDER [None]
